FAERS Safety Report 25552582 (Version 2)
Quarter: 2025Q3

REPORT INFORMATION
  Report Type: Report from Study
  Country: EU (occurrence: EU)
  Receive Date: 20250715
  Receipt Date: 20250801
  Transmission Date: 20251021
  Serious: Yes (Other)
  Sender: TEVA
  Company Number: EU-TEVA-VS-3350783

PATIENT

DRUGS (1)
  1. CLOZAPINE [Suspect]
     Active Substance: CLOZAPINE
     Indication: Cognitive disorder
     Route: 065

REACTIONS (10)
  - Syncope [Unknown]
  - Incontinence [Unknown]
  - Pyrexia [Unknown]
  - Diarrhoea [Unknown]
  - Myoclonus [Unknown]
  - Tachycardia [Unknown]
  - Hypophagia [Unknown]
  - Vomiting [Unknown]
  - Troponin increased [Unknown]
  - Oedema [Unknown]
